FAERS Safety Report 7502923-3 (Version None)
Quarter: 2011Q2

REPORT INFORMATION
  Report Type: 
  Country: None (occurrence: None)
  Receive Date: 20110525
  Receipt Date: 20100907
  Transmission Date: 20111010
  Serious: No
  Sender: FDA-Public Use
  Company Number: US-NOVEN-ALL1-2010-04751

PATIENT
  Sex: Female

DRUGS (6)
  1. CLONIDINE [Concomitant]
     Dosage: .1 MG, 1X/DAY:QD
     Route: 048
     Dates: start: 20070101
  2. TRAZODONE HCL [Concomitant]
     Dosage: 100 MG, 1X/DAY:QD (TWO 50 MG TABLETS)
     Route: 048
     Dates: start: 20070101
  3. DAYTRANA [Suspect]
     Dosage: 20 MG, 1X/DAY:QD
     Route: 062
     Dates: start: 20100901
  4. TRAZODONE HCL [Concomitant]
  5. DAYTRANA [Suspect]
  6. ABILIFY [Concomitant]
     Dosage: 5 MG, 1X/DAY:QD
     Route: 048
     Dates: start: 20090501

REACTIONS (2)
  - APPLICATION SITE PAIN [None]
  - APPLICATION SITE ERYTHEMA [None]
